FAERS Safety Report 9317318 (Version 1)
Quarter: 2013Q2

REPORT INFORMATION
  Report Type: Spontaneous
  Country: US (occurrence: None)
  Receive Date: 20130528
  Receipt Date: 20130528
  Transmission Date: 20140414
  Serious: Yes (Other)
  Sender: FDA-Public Use
  Company Number: None

PATIENT
  Age: 21 Year
  Sex: Female
  Weight: 38.56 kg

DRUGS (1)
  1. FLONASE [Suspect]
     Indication: RHINITIS ALLERGIC
     Dates: start: 20100120

REACTIONS (1)
  - Reaction to drug excipients [None]
